FAERS Safety Report 20864121 (Version 2)
Quarter: 2022Q2

REPORT INFORMATION
  Report Type: Other
  Country: HU (occurrence: HU)
  Receive Date: 20220523
  Receipt Date: 20220606
  Transmission Date: 20220721
  Serious: Yes (Hospitalization)
  Sender: FDA-Public Use
  Company Number: HU-Accord-263252

PATIENT
  Age: 59 Year
  Sex: Female

DRUGS (3)
  1. RITUXIMAB [Suspect]
     Active Substance: RITUXIMAB
     Indication: Product used for unknown indication
     Route: 065
  2. BENDAMUSTINE [Suspect]
     Active Substance: BENDAMUSTINE
     Indication: Product used for unknown indication
     Route: 065
  3. AFLIBERCEPT [Concomitant]
     Active Substance: AFLIBERCEPT
     Dosage: BOTH EYES TO TREAT OCT-CONFIRMED CMA (RIGHT SIDE IN JAN-2021, LEFT SIDE IN NOV-2020 AND MAY-2021)
     Dates: start: 202011

REACTIONS (3)
  - Blindness [Recovered/Resolved with Sequelae]
  - Cytomegalovirus chorioretinitis [Recovered/Resolved with Sequelae]
  - Uveitis [Recovered/Resolved with Sequelae]
